FAERS Safety Report 13853080 (Version 1)
Quarter: 2017Q3

REPORT INFORMATION
  Report Type: Spontaneous
  Country: ES (occurrence: ES)
  Receive Date: 20170809
  Receipt Date: 20170809
  Transmission Date: 20171127
  Serious: Yes (Other)
  Sender: FDA-Public Use
  Company Number: ES-IMPAX LABORATORIES, INC-2017-IPXL-02373

PATIENT
  Age: 79 Year
  Sex: Male

DRUGS (2)
  1. CABERGOLINE. [Suspect]
     Active Substance: CABERGOLINE
     Indication: PRODUCT USE IN UNAPPROVED INDICATION
  2. CABERGOLINE. [Suspect]
     Active Substance: CABERGOLINE
     Indication: PARKINSON^S DISEASE
     Dosage: UNK, FOR ONE YEAR
     Route: 065

REACTIONS (3)
  - Product use in unapproved indication [Unknown]
  - Pleural effusion [Recovered/Resolved]
  - Pulmonary hypertension [Recovered/Resolved]
